FAERS Safety Report 21653162 (Version 1)
Quarter: 2022Q4

REPORT INFORMATION
  Report Type: Report from Study
  Country: DE (occurrence: DE)
  Receive Date: 20221128
  Receipt Date: 20221128
  Transmission Date: 20230113
  Serious: Yes (Hospitalization)
  Sender: FDA-Public Use
  Company Number: DE-JNJFOC-20221151706

PATIENT
  Age: 32 Year
  Sex: Male
  Weight: 130.5 kg

DRUGS (1)
  1. SPRAVATO [Suspect]
     Active Substance: ESKETAMINE
     Indication: Depression
     Dosage: MOST RECENT DOSE ADMINISTERED ON 17-NOV-2022;16:00?MED KIT NUMBER: 107990.
     Dates: start: 20220407

REACTIONS (1)
  - Alcohol poisoning [Recovered/Resolved]

NARRATIVE: CASE EVENT DATE: 20221117
